FAERS Safety Report 17018113 (Version 1)
Quarter: 2019Q4

REPORT INFORMATION
  Report Type: Report from Study
  Country: US (occurrence: US)
  Receive Date: 20191111
  Receipt Date: 20191111
  Transmission Date: 20200122
  Serious: Yes (Death)
  Sender: FDA-Public Use
  Company Number: US-ACTELION-A-NJ2019-196391

PATIENT
  Age: 72 Year
  Sex: Female

DRUGS (12)
  1. TADALAFIL. [Concomitant]
     Active Substance: TADALAFIL
     Dosage: 20 MG, QD
  2. VITAMIN D3 [Concomitant]
     Active Substance: CHOLECALCIFEROL
     Dosage: 50000 MCG, QD
  3. HYDRALAZINE [Concomitant]
     Active Substance: HYDRALAZINE HYDROCHLORIDE
     Dosage: 100 MG, QID
  4. COLCRYS [Concomitant]
     Active Substance: COLCHICINE
     Dosage: 0.6 MG, PRN
  5. ELIQUIS [Concomitant]
     Active Substance: APIXABAN
     Dosage: 2.5 MG, BID
  6. TRAMADOL. [Concomitant]
     Active Substance: TRAMADOL
     Dosage: 50 MG, PRN
  7. TYLENOL [Concomitant]
     Active Substance: ACETAMINOPHEN
     Dosage: 325 MG, PRN
  8. IRON [Concomitant]
     Active Substance: IRON
     Dosage: 65 MG, PRN
  9. OPSUMIT [Suspect]
     Active Substance: MACITENTAN
     Indication: PULMONARY ARTERIAL HYPERTENSION
     Dosage: 10 MG, QD
     Route: 048
     Dates: start: 201909
  10. BUMETANIDE. [Concomitant]
     Active Substance: BUMETANIDE
     Dosage: 1 MG, QD
  11. ENVARSUS XR [Concomitant]
     Active Substance: TACROLIMUS
     Dosage: 1 MG
  12. METOPROLOL. [Concomitant]
     Active Substance: METOPROLOL
     Dosage: 20 MG, QD

REACTIONS (2)
  - Death [Fatal]
  - Peripheral swelling [Recovering/Resolving]

NARRATIVE: CASE EVENT DATE: 201909
